FAERS Safety Report 6120526-2 (Version None)
Quarter: 2009Q1

REPORT INFORMATION
  Report Type: 
  Country: None (occurrence: None)
  Receive Date: 20090317
  Receipt Date: 20090312
  Transmission Date: 20090719
  Serious: Yes (Hospitalization)
  Sender: FDA-Public Use
  Company Number: AU-JNJFOC-20090301739

PATIENT
  Sex: Female

DRUGS (6)
  1. NIZORAL [Suspect]
     Indication: DRUG USE FOR UNKNOWN INDICATION
     Route: 048
  2. VYTORIN [Concomitant]
     Dosage: 10/80 HALF DAILY
     Route: 065
  3. DRUG UNKNOWN [Concomitant]
     Dosage: 1 MANE (MORNING)
     Route: 065
  4. THYROXINE [Concomitant]
     Dosage: EVERY 2ND DAY
     Route: 048
  5. CARDIPRIN [Concomitant]
     Route: 065
  6. SOMAC [Concomitant]
     Dosage: INTERMITTENTLY
     Route: 065

REACTIONS (2)
  - GASTROINTESTINAL HAEMORRHAGE [None]
  - NAUSEA [None]
